FAERS Safety Report 11450858 (Version 1)
Quarter: 2015Q3

REPORT INFORMATION
  Report Type: Spontaneous
  Country: US (occurrence: US)
  Receive Date: 20150903
  Receipt Date: 20150903
  Transmission Date: 20151125
  Serious: No
  Sender: FDA-Public Use
  Company Number: US-ROCHE-1029811

PATIENT
  Sex: Female

DRUGS (2)
  1. PEGASYS [Suspect]
     Active Substance: PEGINTERFERON ALFA-2A
     Indication: HEPATITIS C
     Dosage: 24 WEEKS LENGTH OF THERAPY
     Route: 058
     Dates: start: 20111107
  2. RIBAVIRIN. [Suspect]
     Active Substance: RIBAVIRIN
     Indication: HEPATITIS C
     Dosage: DIVIDED DOSES, 24 WEEKS LENGTH OF THERAPY
     Route: 048
     Dates: start: 20111107

REACTIONS (4)
  - Medication error [Unknown]
  - Nasopharyngitis [Unknown]
  - Cough [Unknown]
  - Epistaxis [Unknown]
